FAERS Safety Report 12856203 (Version 5)
Quarter: 2017Q3

REPORT INFORMATION
  Report Type: Spontaneous
  Country: IT (occurrence: IT)
  Receive Date: 20161018
  Receipt Date: 20170803
  Transmission Date: 20171127
  Serious: Yes (Other)
  Sender: FDA-Public Use
  Company Number: IT-ACCORD-044742

PATIENT
  Age: 68 Year
  Sex: Male
  Weight: 70 kg

DRUGS (3)
  1. FLUOROURACIL. [Suspect]
     Active Substance: FLUOROURACIL
     Indication: NEOPLASM RECURRENCE
     Dosage: LAST DOSE ADMINISTRATION ON 09-JUL-2016
     Route: 040
     Dates: start: 20151216
  2. OXALIPLATIN. [Suspect]
     Active Substance: OXALIPLATIN
     Indication: NEOPLASM RECURRENCE
     Route: 042
     Dates: start: 20151216
  3. LEVOFOLINIC ACID [Concomitant]
     Active Substance: LEVOLEUCOVORIN
     Indication: NEOPLASM RECURRENCE
     Route: 042
     Dates: start: 20151216, end: 20160609

REACTIONS (6)
  - Thrombocytopenia [Recovering/Resolving]
  - Paraesthesia [Not Recovered/Not Resolved]
  - Constipation [Recovering/Resolving]
  - Tracheitis [Recovering/Resolving]
  - Diarrhoea [Recovering/Resolving]
  - Infusion related reaction [Recovering/Resolving]

NARRATIVE: CASE EVENT DATE: 20160108
